FAERS Safety Report 8320549-9 (Version None)
Quarter: 2012Q2

REPORT INFORMATION
  Report Type: 
  Country: None (occurrence: None)
  Receive Date: 20120430
  Receipt Date: 20120424
  Transmission Date: 20120825
  Serious: Yes (Other)
  Sender: FDA-Public Use
  Company Number: HU-PFIZER INC-2011209025

PATIENT
  Age: 69 Year
  Sex: Female
  Weight: 70 kg

DRUGS (12)
  1. METFORMIN HCL [Concomitant]
     Dosage: UNK
  2. DICLAC [Concomitant]
     Dosage: UNK
  3. THEOPHYLLINE [Concomitant]
     Dosage: UNK
  4. MELOXAN [Concomitant]
     Dosage: UNK
  5. NORTIVAN [Concomitant]
     Dosage: UNK
     Dates: start: 20110101
  6. MYDERISON [Concomitant]
     Dosage: UNK
  7. ALLOPURINOL [Concomitant]
     Dosage: UNK
  8. LISONORM [Concomitant]
     Dosage: UNK
  9. LYRICA [Suspect]
     Indication: NEURALGIA
     Dosage: 75 MG, 2X/DAY
     Dates: start: 20110814, end: 20110822
  10. MELOXEP [Concomitant]
     Dosage: UNK
  11. METFORMIN HCL [Concomitant]
     Dosage: UNK
  12. HUMULIN R [Concomitant]
     Dosage: UNK

REACTIONS (6)
  - OEDEMA PERIPHERAL [None]
  - RASH [None]
  - HYPERTENSION [None]
  - DIARRHOEA [None]
  - TINNITUS [None]
  - EYE SWELLING [None]
